FAERS Safety Report 15291827 (Version 4)
Quarter: 2019Q2

REPORT INFORMATION
  Report Type: Report from Study
  Country: US (occurrence: US)
  Receive Date: 20180817
  Receipt Date: 20190607
  Transmission Date: 20190711
  Serious: Yes (Other)
  Sender: FDA-Public Use
  Company Number: PHEH2018US034074

PATIENT
  Sex: Female

DRUGS (1)
  1. ENTRESTO [Suspect]
     Active Substance: SACUBITRIL\VALSARTAN
     Indication: PRODUCT USED FOR UNKNOWN INDICATION
     Dosage: UNK UNK, BID
     Route: 048

REACTIONS (12)
  - Influenza [Unknown]
  - Weight increased [Unknown]
  - Lethargy [Unknown]
  - Exercise tolerance decreased [Unknown]
  - Hypophagia [Unknown]
  - Fatigue [Unknown]
  - Pericardial effusion [Unknown]
  - Ejection fraction decreased [Unknown]
  - Feeling abnormal [Unknown]
  - Blood glucose increased [Unknown]
  - Blood pressure increased [Recovering/Resolving]
  - Asthenia [Unknown]
